FAERS Safety Report 10912915 (Version 1)
Quarter: 2015Q1

REPORT INFORMATION
  Report Type: Spontaneous
  Country: US (occurrence: None)
  Receive Date: 20150310
  Receipt Date: 20150310
  Transmission Date: 20150721
  Serious: Yes (Hospitalization, Other)
  Sender: FDA-Public Use
  Company Number: US-ZYDUS-006837

PATIENT
  Age: 26 Week
  Sex: Female
  Weight: 2.79 kg

DRUGS (1)
  1. SODIUM VALPROATE (SODIUM VALPROATE) [Suspect]
     Active Substance: VALPROATE SODIUM
     Route: 064

REACTIONS (4)
  - Caesarean section [None]
  - Foetal anticonvulsant syndrome [None]
  - Maternal drugs affecting foetus [None]
  - Premature baby [None]
